FAERS Safety Report 8237432-X (Version None)
Quarter: 2012Q1

REPORT INFORMATION
  Report Type: 
  Country: None (occurrence: None)
  Receive Date: 20120327
  Receipt Date: 20120321
  Transmission Date: 20120608
  Serious: Yes (Hospitalization)
  Sender: FDA-Public Use
  Company Number: US-BAYER-2011-063055

PATIENT
  Age: 32 Year
  Sex: Female
  Weight: 77.551 kg

DRUGS (6)
  1. IBUPROFEN [Concomitant]
  2. ACIPHEX [Concomitant]
  3. NEXIUM [Concomitant]
  4. ORTHO-NOVUM 7/7/7-21 [Concomitant]
     Dosage: UNK
     Dates: start: 20060101, end: 20080101
  5. YASMIN [Suspect]
     Dosage: UNK
     Route: 048
     Dates: start: 20010101, end: 20060201
  6. PROTONIX [Concomitant]

REACTIONS (7)
  - BACK PAIN [None]
  - DEPRESSION [None]
  - PAIN [None]
  - ANXIETY [None]
  - ANHEDONIA [None]
  - CHOLELITHIASIS [None]
  - CHOLECYSTITIS [None]
